FAERS Safety Report 20204823 (Version 1)
Quarter: 2021Q4

REPORT INFORMATION
  Report Type: Other
  Country: US (occurrence: None)
  Receive Date: 20211220
  Receipt Date: 20211220
  Transmission Date: 20220303
  Serious: Yes (Other)
  Sender: FDA-Public Use
  Company Number: US-ROCHE-2917830

PATIENT
  Sex: Male

DRUGS (1)
  1. PULMOZYME [Suspect]
     Active Substance: DORNASE ALFA
     Indication: Cystic fibrosis
     Dosage: NEBULIZE THE CONTENTS OF 1 VIAL(S) DAILY
     Route: 055

REACTIONS (3)
  - Product prescribing error [Unknown]
  - Off label use [Unknown]
  - Cerebrovascular accident [Unknown]
